FAERS Safety Report 8496797-4 (Version None)
Quarter: 2012Q3

REPORT INFORMATION
  Report Type: 
  Country: None (occurrence: None)
  Receive Date: 20120709
  Receipt Date: 20120703
  Transmission Date: 20120928
  Serious: Yes (Death)
  Sender: FDA-Public Use
  Company Number: PHHY2012DE040205

PATIENT
  Sex: Male
  Weight: 88 kg

DRUGS (4)
  1. BICALUTAMIDE [Concomitant]
     Indication: PROSTATE CANCER
     Dosage: 50 MG, DAILY
     Route: 048
     Dates: start: 20110112
  2. ZOLEDRONOC ACID [Suspect]
     Indication: BONE DISORDER
     Dosage: UNK UKN, UNK
     Route: 042
     Dates: start: 20110112
  3. ZOLEDRONOC ACID [Suspect]
     Dosage: UNK UKN, UNK
     Route: 042
     Dates: start: 20110606, end: 20120210
  4. ZOLADEX [Concomitant]
     Dosage: 10.8 MG, DAILY
     Route: 058
     Dates: start: 20110112

REACTIONS (1)
  - DEATH [None]
